FAERS Safety Report 12674010 (Version 1)
Quarter: 2016Q3

REPORT INFORMATION
  Report Type: Spontaneous
  Country: GB (occurrence: GB)
  Receive Date: 20160822
  Receipt Date: 20160822
  Transmission Date: 20161109
  Serious: Yes (Life-Threatening, Hospitalization, Disabling)
  Sender: FDA-Public Use
  Company Number: GB-MYLANLABS-2016M1034074

PATIENT

DRUGS (5)
  1. LANTUS [Suspect]
     Active Substance: INSULIN GLARGINE
     Dosage: UNK
     Route: 065
  2. CAPECITABINE. [Suspect]
     Active Substance: CAPECITABINE
     Indication: ADENOCARCINOMA PANCREAS
     Dosage: 2000 MG, BID
     Route: 048
     Dates: start: 20150511, end: 20150610
  3. RUXOLITINIB PHOSPHATE [Concomitant]
     Active Substance: RUXOLITINIB PHOSPHATE
     Dosage: 15 MG, BID
     Dates: start: 20150511
  4. LANTUS [Suspect]
     Active Substance: INSULIN GLARGINE
     Dosage: UNK
     Route: 065
     Dates: end: 20150610
  5. HUMAN INSULATARD [Concomitant]
     Active Substance: INSULIN HUMAN
     Dosage: UNK
     Dates: end: 20150520

REACTIONS (6)
  - Product use issue [Unknown]
  - Malaise [Recovered/Resolved]
  - Hypoglycaemia [Recovered/Resolved]
  - Accidental overdose [Recovered/Resolved]
  - Tremor [Recovered/Resolved]
  - Somnolence [Recovered/Resolved]

NARRATIVE: CASE EVENT DATE: 20150520
